FAERS Safety Report 19583830 (Version 3)
Quarter: 2021Q3

REPORT INFORMATION
  Report Type: Spontaneous
  Country: US (occurrence: US)
  Receive Date: 20210720
  Receipt Date: 20210812
  Transmission Date: 20211014
  Serious: Yes (Hospitalization, Disabling, Other)
  Sender: FDA-Public Use
  Company Number: US-PFIZER INC-2021855878

PATIENT
  Age: 66 Year
  Sex: Male
  Weight: 67.13 kg

DRUGS (2)
  1. LIPITOR [Suspect]
     Active Substance: ATORVASTATIN CALCIUM
     Indication: LIPIDS INCREASED
     Dosage: 40 MG, 1X/DAY (40MG ONE TIME A DAY AT NIGHT BY MOUTH)
     Route: 048
     Dates: start: 2008, end: 20100317
  2. LIPITOR [Suspect]
     Active Substance: ATORVASTATIN CALCIUM
     Indication: BLOOD CHOLESTEROL INCREASED

REACTIONS (3)
  - Weight decreased [Not Recovered/Not Resolved]
  - Necrotising myositis [Unknown]
  - Autoimmune myositis [Not Recovered/Not Resolved]

NARRATIVE: CASE EVENT DATE: 2010
